FAERS Safety Report 16003277 (Version 1)
Quarter: 2019Q1

REPORT INFORMATION
  Report Type: Spontaneous
  Country: PL (occurrence: PL)
  Receive Date: 20190225
  Receipt Date: 20190225
  Transmission Date: 20190418
  Serious: Yes (Other)
  Sender: FDA-Public Use
  Company Number: PL-009507513-1902POL005100

PATIENT
  Age: 32 Year
  Sex: Female

DRUGS (3)
  1. PEGINTERFERON ALFA-2A. [Suspect]
     Active Substance: PEGINTERFERON ALFA-2A
     Indication: ANTIVIRAL TREATMENT
     Dosage: 180 MG/WEEK
     Dates: start: 20151001
  2. RIBAVIRIN. [Suspect]
     Active Substance: RIBAVIRIN
     Indication: ANTIVIRAL TREATMENT
     Dosage: 800 MG/DAY
     Dates: start: 20151001
  3. SOFOSBUVIR [Suspect]
     Active Substance: SOFOSBUVIR
     Indication: ANTIVIRAL TREATMENT
     Dosage: 400 MILLIGRAM
     Dates: start: 20151001

REACTIONS (1)
  - Pancytopenia [Unknown]
